FAERS Safety Report 16589345 (Version 1)
Quarter: 2019Q3

REPORT INFORMATION
  Report Type: Spontaneous
  Country: FR (occurrence: FR)
  Receive Date: 20190718
  Receipt Date: 20190718
  Transmission Date: 20191004
  Serious: Yes (Other)
  Sender: FDA-Public Use
  Company Number: FR-TEVA-2019-FR-1078058

PATIENT
  Age: 85 Year
  Sex: Male
  Weight: 69 kg

DRUGS (4)
  1. PRAVASTATINE SODIQUE [Concomitant]
     Active Substance: PRAVASTATIN SODIUM
  2. AMOXICILLINE [Suspect]
     Active Substance: AMOXICILLIN
     Indication: PNEUMOCYSTIS JIROVECII INFECTION
     Route: 048
     Dates: start: 20180705, end: 20180707
  3. WELLVONE [Concomitant]
     Active Substance: ATOVAQUONE
  4. ALLOPURINOL. [Concomitant]
     Active Substance: ALLOPURINOL

REACTIONS (1)
  - Skin reaction [Recovered/Resolved]

NARRATIVE: CASE EVENT DATE: 20180707
